FAERS Safety Report 8953173 (Version 1)
Quarter: 2012Q4

REPORT INFORMATION
  Report Type: 
  Country: JP (occurrence: JP)
  Receive Date: 20121206
  Receipt Date: 20121206
  Transmission Date: 20130627
  Serious: Yes (Hospitalization)
  Sender: FDA-Public Use
  Company Number: JP-009507513-2012SP015362

PATIENT
  Age: 59 Year
  Sex: Female
  Weight: 51 kg

DRUGS (8)
  1. PEGINTRON [Suspect]
     Indication: CHRONIC HEPATITIS C
     Dosage: 1.5 Microgram per kilogram, qw
     Route: 058
     Dates: start: 20120202
  2. REBETOL [Suspect]
     Indication: CHRONIC HEPATITIS C
     Dosage: 600 mg, qd
     Route: 048
     Dates: start: 20120202, end: 20120215
  3. REBETOL [Suspect]
     Dosage: 400 mg, QD
     Route: 048
     Dates: start: 20120216, end: 20120222
  4. REBETOL [Suspect]
     Dosage: 200 mg, QD
     Route: 048
     Dates: start: 20120223, end: 20120310
  5. TELAVIC [Suspect]
     Indication: CHRONIC HEPATITIS C
     Dosage: 2250 mg qd
     Route: 048
     Dates: start: 20120202, end: 20120229
  6. TELAVIC [Suspect]
     Dosage: 1500 mg qd
     Route: 048
     Dates: start: 20120301, end: 20120307
  7. LOXONIN [Concomitant]
     Indication: PROPHYLAXIS
     Dosage: UNK, prn
     Route: 048
     Dates: start: 20120202, end: 20120310
  8. CYTOTEC [Concomitant]
     Indication: PROPHYLAXIS
     Dosage: UNK, prn
     Route: 048
     Dates: start: 20120202, end: 20120310

REACTIONS (3)
  - Blood creatinine increased [Recovered/Resolved]
  - Anaemia [Recovered/Resolved]
  - Decreased appetite [Recovered/Resolved]
